FAERS Safety Report 8996829 (Version 1)
Quarter: 2012Q4

REPORT INFORMATION
  Report Type: Spontaneous
  Country: US (occurrence: None)
  Receive Date: 20121228
  Receipt Date: 20121228
  Transmission Date: 20130627
  Serious: Yes (Hospitalization)
  Sender: FDA-Public Use
  Company Number: None

PATIENT
  Age: 29 Year
  Sex: Female
  Weight: 44.45 kg

DRUGS (1)
  1. PARAGARD [Suspect]
     Indication: BIRTH CONTROL
     Dates: start: 200903, end: 20121204

REACTIONS (4)
  - Device dislocation [None]
  - Device dislocation [None]
  - Device breakage [None]
  - Complication of device removal [None]
